FAERS Safety Report 8826586 (Version 2)
Quarter: 2013Q2

REPORT INFORMATION
  Report Type: Spontaneous
  Country: GB (occurrence: GB)
  Receive Date: 20121005
  Receipt Date: 20130412
  Transmission Date: 20140414
  Serious: Yes (Hospitalization, Other)
  Sender: FDA-Public Use
  Company Number: PHHY2012GB085067

PATIENT
  Age: 55 Year
  Sex: Female

DRUGS (2)
  1. PREDNISOLONE [Suspect]
     Indication: LIVER TRANSPLANT
     Dosage: 15 MG, QD
  2. TACROLIMUS [Suspect]
     Indication: LIVER TRANSPLANT
     Dosage: 5 MG, BID

REACTIONS (5)
  - Acute coronary syndrome [Recovered/Resolved]
  - Arterial occlusive disease [Recovered/Resolved]
  - Arteriosclerosis [Recovered/Resolved]
  - Chest pain [Recovered/Resolved]
  - Coronary artery dissection [Recovered/Resolved]
